FAERS Safety Report 9264341 (Version 1)
Quarter: 2013Q2

REPORT INFORMATION
  Report Type: Spontaneous
  Country: BR (occurrence: BR)
  Receive Date: 20130430
  Receipt Date: 20130430
  Transmission Date: 20140414
  Serious: Yes (Hospitalization)
  Sender: FDA-Public Use
  Company Number: BR-PFIZER INC-2013132963

PATIENT
  Age: 46 Year
  Sex: Female
  Weight: 77 kg

DRUGS (2)
  1. LYRICA [Suspect]
     Indication: SPINAL PAIN
     Dosage: 1 CAPSULE (75 MG), 2X/DAY, CONTINUED USE
     Route: 048
     Dates: start: 2010
  2. LYRICA [Suspect]
     Indication: PAIN IN EXTREMITY
     Dosage: UNK
     Route: 048
     Dates: start: 201302

REACTIONS (3)
  - Sciatica [Recovering/Resolving]
  - Intervertebral disc protrusion [Recovering/Resolving]
  - Spinal disorder [Recovering/Resolving]
